FAERS Safety Report 9520452 (Version 2)
Quarter: 2013Q4

REPORT INFORMATION
  Report Type: Report from Study
  Country: US (occurrence: US)
  Receive Date: 20130912
  Receipt Date: 20131226
  Transmission Date: 20140711
  Serious: Yes (Death)
  Sender: FDA-Public Use
  Company Number: US-ROCHE-1275297

PATIENT
  Sex: Female

DRUGS (10)
  1. AVASTIN [Suspect]
     Indication: OVARIAN CANCER
     Route: 042
     Dates: start: 20130722, end: 20130814
  2. AVASTIN [Suspect]
     Indication: FALLOPIAN TUBE CANCER
  3. PARAPLATIN [Concomitant]
  4. TAXOL [Concomitant]
     Indication: FALLOPIAN TUBE CANCER
     Route: 042
     Dates: start: 20130722, end: 20130813
  5. ALOXI [Concomitant]
  6. FAMOTIDINE [Concomitant]
  7. CARBOPLATIN [Concomitant]
     Indication: FALLOPIAN TUBE CANCER
     Route: 042
     Dates: start: 20130722, end: 20130813
  8. BENADRYL (UNITED STATES) [Concomitant]
  9. DECADRON [Concomitant]
  10. PEPCID [Concomitant]

REACTIONS (1)
  - Disease progression [Fatal]
